FAERS Safety Report 4303907-9 (Version None)
Quarter: 2004Q1

REPORT INFORMATION
  Report Type: 
  Country: None (occurrence: None)
  Receive Date: 20040225
  Receipt Date: 20040216
  Transmission Date: 20041129
  Serious: Yes (Disabling)
  Sender: FDA-Public Use
  Company Number: WAES 0402USA01144

PATIENT
  Sex: Female

DRUGS (9)
  1. [THERAPY UNSPECIFIED] [Concomitant]
  2. DARVOCET-N 100 [Concomitant]
  3. BENACOL [Concomitant]
  4. PROZAC [Concomitant]
  5. NEURONTIN [Concomitant]
  6. QUINIDINE [Concomitant]
  7. ZOCOR [Suspect]
     Indication: BLOOD CHOLESTEROL INCREASED
     Route: 048
     Dates: end: 20040213
  8. ZOCOR [Suspect]
     Route: 048
  9. IMITREX [Concomitant]

REACTIONS (3)
  - ABDOMINAL DISTENSION [None]
  - VOMITING [None]
  - WEIGHT INCREASED [None]
